FAERS Safety Report 9913894 (Version 1)
Quarter: 2014Q1

REPORT INFORMATION
  Report Type: Spontaneous
  Country: US (occurrence: None)
  Receive Date: 20140218
  Receipt Date: 20140218
  Transmission Date: 20141002
  Serious: Yes (Hospitalization)
  Sender: FDA-Public Use
  Company Number: AEGR000288

PATIENT
  Age: 50 Year
  Sex: Male

DRUGS (8)
  1. JUXTAPID [Suspect]
     Route: 048
  2. CRESTOR [Concomitant]
  3. LORTAB [Concomitant]
  4. XANAX [Suspect]
  5. PROTONIX [Concomitant]
  6. METFORMIN (METFORMIN) [Suspect]
  7. PROCARDIA [Concomitant]
  8. GABAPENTIN [Concomitant]

REACTIONS (3)
  - Bronchitis [None]
  - Chronic obstructive pulmonary disease [None]
  - Staphylococcal infection [None]
